FAERS Safety Report 19002625 (Version 1)
Quarter: 2021Q1

REPORT INFORMATION
  Report Type: Spontaneous
  Country: US (occurrence: US)
  Receive Date: 20210312
  Receipt Date: 20210312
  Transmission Date: 20210420
  Serious: No
  Sender: FDA-Public Use
  Company Number: US-ALLERGAN-2020143US

PATIENT
  Age: 83 Year
  Sex: Female

DRUGS (1)
  1. ESTRADIOL VAGINAL CREAM USP 0.01% [Suspect]
     Active Substance: ESTRADIOL
     Indication: URINARY TRACT INFECTION

REACTIONS (3)
  - Therapeutic response unexpected [Unknown]
  - Off label use [Unknown]
  - Product container seal issue [Unknown]
